FAERS Safety Report 25682748 (Version 1)
Quarter: 2025Q3

REPORT INFORMATION
  Report Type: Spontaneous
  Country: GB (occurrence: GB)
  Receive Date: 20250814
  Receipt Date: 20250814
  Transmission Date: 20251021
  Serious: Yes (Life-Threatening, Hospitalization, Other)
  Sender: AMGEN
  Company Number: GB-AMGEN-GBRSP2025157651

PATIENT
  Sex: Female

DRUGS (2)
  1. ADALIMUMAB [Suspect]
     Active Substance: ADALIMUMAB
     Indication: Crohn^s disease
     Route: 065
  2. INFLIXIMAB [Concomitant]
     Active Substance: INFLIXIMAB
     Indication: Crohn^s disease

REACTIONS (6)
  - Respiratory failure [Unknown]
  - Pneumonia [Unknown]
  - Acute kidney injury [Unknown]
  - Immune reconstitution inflammatory syndrome [Unknown]
  - Pancreatitis [Unknown]
  - Disseminated tuberculosis [Unknown]
